FAERS Safety Report 24870658 (Version 1)
Quarter: 2025Q1

REPORT INFORMATION
  Report Type: Spontaneous
  Country: JP (occurrence: JP)
  Receive Date: 20250121
  Receipt Date: 20250121
  Transmission Date: 20250408
  Serious: Yes (Hospitalization)
  Sender: FERRING
  Company Number: JP-ferring-EVA202401820FERRINGPH

PATIENT

DRUGS (4)
  1. DESMOPRESSIN ACETATE [Suspect]
     Active Substance: DESMOPRESSIN ACETATE
     Indication: Diabetes insipidus
     Dosage: 120 UG, 2 TIMES DAILY
     Route: 048
     Dates: start: 202409
  2. CLOPIDOGREL [Concomitant]
     Active Substance: CLOPIDOGREL BISULFATE
     Route: 065
  3. DILTIAZEM HYDROCHLORIDE [Concomitant]
     Active Substance: DILTIAZEM HYDROCHLORIDE
     Route: 065
  4. BENIDIPINE HYDROCHLORIDE [Concomitant]
     Active Substance: BENIDIPINE HYDROCHLORIDE
     Route: 065

REACTIONS (1)
  - Gastroenteritis [Unknown]
